FAERS Safety Report 7545399-2 (Version None)
Quarter: 2011Q2

REPORT INFORMATION
  Report Type: 
  Country: None (occurrence: None)
  Receive Date: 20110614
  Receipt Date: 20110607
  Transmission Date: 20111010
  Serious: Yes (Other)
  Sender: FDA-Public Use
  Company Number: US-AMGEN-USASP2011017242

PATIENT
  Age: 63 Year
  Sex: Male

DRUGS (3)
  1. IMMUNOGLOBULINS [Concomitant]
  2. NPLATE [Suspect]
     Dates: start: 20090521, end: 20110426
  3. NPLATE [Suspect]
     Indication: IDIOPATHIC THROMBOCYTOPENIC PURPURA
     Dosage: 7 A?G/KG, QWK
     Dates: start: 20090521, end: 20110519

REACTIONS (6)
  - LEUKOCYTOSIS [None]
  - INJECTION SITE HAEMATOMA [None]
  - ANAEMIA [None]
  - BIOPSY BONE MARROW ABNORMAL [None]
  - PLATELET COUNT ABNORMAL [None]
  - BONE MARROW RETICULIN FIBROSIS [None]
